FAERS Safety Report 4897918-2 (Version None)
Quarter: 2006Q1

REPORT INFORMATION
  Report Type: 
  Country: None (occurrence: None)
  Receive Date: 20060130
  Receipt Date: 20060116
  Transmission Date: 20060701
  Serious: Yes (Other)
  Sender: FDA-Public Use
  Company Number: 2006BH000782

PATIENT

DRUGS (2)
  1. ACYCLOVIR [Suspect]
     Dosage: 20 MG/KG;
  2. GENTAMICIN [Suspect]
     Dosage: 5 MG/KG;

REACTIONS (1)
  - NEPHROPATHY [None]
